FAERS Safety Report 5188125-7 (Version None)
Quarter: 2006Q4

REPORT INFORMATION
  Report Type: 
  Country: None (occurrence: None)
  Receive Date: 20061218
  Receipt Date: 20061218
  Transmission Date: 20070319
  Serious: No
  Sender: FDA-Public Use
  Company Number: None

PATIENT
  Sex: Male
  Weight: 85.7298 kg

DRUGS (2)
  1. ZONISAMIDE [Suspect]
     Indication: MYOCLONUS
     Dosage: 100 MG DAILY (PO)
     Route: 048
     Dates: start: 20060629, end: 20061207
  2. ZONISAMIDE [Suspect]
     Indication: TORTICOLLIS
     Dosage: 100 MG DAILY (PO)
     Route: 048
     Dates: start: 20060629, end: 20061207

REACTIONS (1)
  - VOMITING [None]
